FAERS Safety Report 13688030 (Version 2)
Quarter: 2017Q2

REPORT INFORMATION
  Report Type: Spontaneous
  Country: RO (occurrence: RO)
  Receive Date: 20170626
  Receipt Date: 20170630
  Transmission Date: 20170830
  Serious: Yes (Death)
  Sender: FDA-Public Use
  Company Number: RO-ROCHE-1955243

PATIENT
  Age: 68 Year
  Sex: Female
  Weight: 45 kg

DRUGS (7)
  1. MABTHERA [Suspect]
     Active Substance: RITUXIMAB
     Indication: RHEUMATOID ARTHRITIS
     Route: 042
     Dates: start: 20170216
  2. OMEPRAZOL [Concomitant]
     Active Substance: OMEPRAZOLE
  3. LEFLUNOMID [Concomitant]
     Active Substance: LEFLUNOMIDE
  4. ALPHA D3 [Concomitant]
  5. MABTHERA [Suspect]
     Active Substance: RITUXIMAB
     Route: 042
     Dates: start: 20170303
  6. PROLIA [Concomitant]
     Active Substance: DENOSUMAB
  7. CALCIUM LACTATE [Concomitant]
     Active Substance: CALCIUM LACTATE

REACTIONS (1)
  - Acute myocardial infarction [Fatal]

NARRATIVE: CASE EVENT DATE: 20170620
